FAERS Safety Report 20632683 (Version 2)
Quarter: 2022Q4

REPORT INFORMATION
  Report Type: Spontaneous
  Country: JP (occurrence: JP)
  Receive Date: 20220324
  Receipt Date: 20221103
  Transmission Date: 20230113
  Serious: Yes (Death, Other)
  Sender: FDA-Public Use
  Company Number: JP-JAZZ-2022-JP-008685

PATIENT
  Age: 58 Year
  Sex: Male
  Weight: 62 kg

DRUGS (5)
  1. DEFITELIO [Suspect]
     Active Substance: DEFIBROTIDE SODIUM
     Indication: Venoocclusive liver disease
     Dosage: 25 MILLIGRAM/KILOGRAM/24HOURS
     Route: 042
     Dates: start: 20211102, end: 20211120
  2. THROMBOMODULIN ALFA [Concomitant]
     Active Substance: THROMBOMODULIN ALFA
     Indication: Product used for unknown indication
     Dosage: UNK
     Dates: start: 20211105, end: 20211119
  3. NONTHRON [Concomitant]
     Indication: Product used for unknown indication
     Dosage: UNK
     Dates: start: 20211102, end: 20211120
  4. INOVAN [DOPAMINE HYDROCHLORIDE] [Concomitant]
     Indication: Hypotension
     Dosage: UNK
     Dates: start: 20211104
  5. NOREPINEPHRINE BITARTRATE [Concomitant]
     Active Substance: NOREPINEPHRINE BITARTRATE
     Indication: Hypotension
     Dosage: UNK
     Dates: start: 20211104

REACTIONS (2)
  - Venoocclusive liver disease [Fatal]
  - Hypotension [Not Recovered/Not Resolved]

NARRATIVE: CASE EVENT DATE: 20211102
